FAERS Safety Report 5571177-X (Version None)
Quarter: 2007Q4

REPORT INFORMATION
  Report Type: 
  Country: None (occurrence: None)
  Receive Date: 20071221
  Receipt Date: 20070212
  Transmission Date: 20080405
  Serious: No
  Sender: FDA-Public Use
  Company Number: A0632332A

PATIENT
  Age: 51 Year
  Sex: Female
  Weight: 68.2 kg

DRUGS (2)
  1. FLUTICASONE PROPIONATE [Suspect]
     Indication: MULTIPLE ALLERGIES
     Dosage: 1SPR PER DAY
     Route: 045
     Dates: start: 20060101
  2. ACTIFED [Concomitant]

REACTIONS (5)
  - DRUG INEFFECTIVE [None]
  - HYPOACUSIS [None]
  - MIDDLE EAR EFFUSION [None]
  - PHARMACEUTICAL PRODUCT COMPLAINT [None]
  - SNEEZING [None]
